FAERS Safety Report 6055630-0 (Version None)
Quarter: 2009Q1

REPORT INFORMATION
  Report Type: 
  Country: None (occurrence: None)
  Receive Date: 20090123
  Receipt Date: 20090115
  Transmission Date: 20090719
  Serious: Yes (Other)
  Sender: FDA-Public Use
  Company Number: IPS_01437_2009

PATIENT
  Sex: Male

DRUGS (4)
  1. APOKYN [Suspect]
     Indication: PARKINSON'S DISEASE
     Dosage: 0.2 ML 1X SUBCUTANEOUS
     Route: 058
     Dates: start: 20090115, end: 20090115
  2. APOKYN [Suspect]
     Indication: PARKINSON'S DISEASE
     Dosage: DF SUBCUTANEOUS
     Route: 058
     Dates: start: 20070101
  3. SINEMET [Concomitant]
  4. REQUIP [Concomitant]

REACTIONS (3)
  - BLOOD PRESSURE INCREASED [None]
  - PARAESTHESIA [None]
  - VISION BLURRED [None]
